FAERS Safety Report 9689103 (Version 1)
Quarter: 2013Q4

REPORT INFORMATION
  Report Type: Spontaneous
  Country: BR (occurrence: BR)
  Receive Date: 20131114
  Receipt Date: 20131114
  Transmission Date: 20140711
  Serious: Yes (Other)
  Sender: FDA-Public Use
  Company Number: PHHY2013BR130051

PATIENT
  Age: 19 Month
  Sex: Male

DRUGS (3)
  1. TRILEPTAL [Suspect]
     Dosage: UNK UKN, UNK
  2. PHENOBARBITAL [Suspect]
     Dosage: UNK UKN, UNK
  3. FRISIUM [Suspect]
     Dosage: UNK UKN, UNK

REACTIONS (1)
  - Cerebral palsy [Unknown]
